FAERS Safety Report 5568887-7 (Version None)
Quarter: 2007Q4

REPORT INFORMATION
  Report Type: 
  Country: None (occurrence: None)
  Receive Date: 20071220
  Receipt Date: 20070430
  Transmission Date: 20080405
  Serious: No
  Sender: FDA-Public Use
  Company Number: A0641354A

PATIENT
  Age: 74 Year
  Sex: Male

DRUGS (5)
  1. AVODART [Suspect]
     Indication: BENIGN PROSTATIC HYPERPLASIA
     Dosage: .5MG PER DAY
     Route: 048
     Dates: start: 20070228
  2. FLOMAX [Concomitant]
  3. AGGRENOX [Concomitant]
  4. METFORMIN HCL [Concomitant]
  5. LIPITOR [Concomitant]

REACTIONS (3)
  - DRUG INEFFECTIVE [None]
  - FEELING HOT [None]
  - URINARY TRACT DISORDER [None]
